FAERS Safety Report 24560152 (Version 2)
Quarter: 2024Q4

REPORT INFORMATION
  Report Type: Spontaneous
  Country: US (occurrence: US)
  Receive Date: 20241029
  Receipt Date: 20241112
  Transmission Date: 20250115
  Serious: No
  Sender: BLUEPRINT MEDICINES
  Company Number: US-Blueprint Medicines Corporation-5134

PATIENT
  Age: 36 Year
  Sex: Female

DRUGS (2)
  1. AYVAKIT [Suspect]
     Active Substance: AVAPRITINIB
     Indication: Haematopoietic neoplasm
     Route: 065
     Dates: start: 202410
  2. AYVAKIT [Suspect]
     Active Substance: AVAPRITINIB
     Indication: Systemic mastocytosis

REACTIONS (7)
  - Palpitations [Unknown]
  - Hypertension [Unknown]
  - Pain [Unknown]
  - Heart rate increased [Unknown]
  - Head discomfort [Unknown]
  - Dizziness postural [Unknown]
  - Adverse drug reaction [Unknown]
